FAERS Safety Report 7942081 (Version 3)
Quarter: 2016Q3

REPORT INFORMATION
  Report Type: Report from Study
  Country: DE (occurrence: DE)
  Receive Date: 20110512
  Receipt Date: 20160726
  Transmission Date: 20161109
  Serious: Yes (Hospitalization)
  Sender: FDA-Public Use
  Company Number: DE-ROCHE-776714

PATIENT
  Age: 75 Year
  Sex: Male
  Weight: 62.2 kg

DRUGS (1)
  1. INTERFERON ALFA-2A [Suspect]
     Active Substance: INTERFERON ALFA-2A
     Indication: RENAL CELL CARCINOMA
     Route: 058

REACTIONS (4)
  - Hyperbilirubinaemia [Recovered/Resolved]
  - Transaminases increased [Recovered/Resolved]
  - Anaemia [Recovered/Resolved]
  - Blood alkaline phosphatase increased [Not Recovered/Not Resolved]

NARRATIVE: CASE EVENT DATE: 20110224
